FAERS Safety Report 23613969 (Version 1)
Quarter: 2024Q1

REPORT INFORMATION
  Report Type: Spontaneous
  Country: BG (occurrence: BG)
  Receive Date: 20240310
  Receipt Date: 20240310
  Transmission Date: 20240410
  Serious: Yes (Other)
  Sender: FDA-Public Use
  Company Number: BG-EMA-DD-20240214-7483181-075016

PATIENT
  Age: 54 Year
  Sex: Male

DRUGS (9)
  1. CARBOPLATIN [Suspect]
     Active Substance: CARBOPLATIN
     Indication: Metastases to lymph nodes
     Dosage: DOSED AT AN AREA UNDER THE CURVE (AUC) OF 5 MG/ML PER MINUTE-4 CYCLES
     Route: 065
     Dates: start: 2021, end: 2021
  2. CARBOPLATIN [Suspect]
     Active Substance: CARBOPLATIN
     Indication: Lung adenocarcinoma
  3. CARBOPLATIN [Suspect]
     Active Substance: CARBOPLATIN
     Indication: Metastases to muscle
  4. PEMETREXED [Suspect]
     Active Substance: PEMETREXED
     Indication: Metastases to muscle
     Dosage: 500 MG/M? EACH CYCLE FOR 4 CYCLES
     Route: 065
     Dates: start: 2021, end: 2021
  5. PEMETREXED [Suspect]
     Active Substance: PEMETREXED
     Indication: Lung adenocarcinoma
  6. PEMETREXED [Suspect]
     Active Substance: PEMETREXED
     Indication: Metastases to lymph nodes
  7. PEMBROLIZUMAB [Suspect]
     Active Substance: PEMBROLIZUMAB
     Indication: Lung adenocarcinoma
     Dosage: FIXED DOS AT 200 MG EACH CYCLE FOR 4 CYCLES
     Route: 065
     Dates: start: 2021, end: 2021
  8. PEMBROLIZUMAB [Suspect]
     Active Substance: PEMBROLIZUMAB
     Indication: Metastases to lymph nodes
  9. PEMBROLIZUMAB [Suspect]
     Active Substance: PEMBROLIZUMAB
     Indication: Metastases to muscle

REACTIONS (3)
  - Restrictive pulmonary disease [Recovering/Resolving]
  - Idiopathic pulmonary fibrosis [Recovering/Resolving]
  - Autoimmune lung disease [Recovering/Resolving]

NARRATIVE: CASE EVENT DATE: 20210501
